FAERS Safety Report 6132614-5 (Version None)
Quarter: 2009Q1

REPORT INFORMATION
  Report Type: 
  Country: None (occurrence: None)
  Receive Date: 20090324
  Receipt Date: 20090310
  Transmission Date: 20090719
  Serious: Yes (Hospitalization)
  Sender: FDA-Public Use
  Company Number: DSA_33351_2009

PATIENT
  Age: 85 Year
  Sex: Male

DRUGS (4)
  1. ENALAPRIL MALEATE [Suspect]
     Indication: HYPERTENSION
     Dosage: (5 MG QD ORAL), (10 MG QD ORAL)
     Route: 048
     Dates: end: 20090109
  2. ENALAPRIL MALEATE [Suspect]
     Indication: HYPERTENSION
     Dosage: (5 MG QD ORAL), (10 MG QD ORAL)
     Route: 048
     Dates: start: 20090109
  3. METOPROLOL TARTRATE [Suspect]
     Indication: HYPERTENSION
     Dosage: (50 MG QD ORAL)
     Route: 048
  4. SPIRONOLACTONE [Suspect]
     Indication: HYPERTENSION
     Dosage: (25 MG QD ORAL)
     Route: 048

REACTIONS (3)
  - DIZZINESS [None]
  - HYPOTENSION [None]
  - VISUAL IMPAIRMENT [None]
